FAERS Safety Report 7229778-9 (Version None)
Quarter: 2011Q1

REPORT INFORMATION
  Report Type: 
  Country: None (occurrence: None)
  Receive Date: 20110117
  Receipt Date: 20110112
  Transmission Date: 20110831
  Serious: Yes (Death, Hospitalization)
  Sender: FDA-Public Use
  Company Number: JO-PFIZER INC-2011007722

PATIENT
  Age: 29 Year
  Sex: Male

DRUGS (5)
  1. RAPAMUNE [Suspect]
     Indication: IMMUNOSUPPRESSANT DRUG THERAPY
     Dosage: 2 MG, 1X/DAY
     Route: 048
     Dates: start: 20080101
  2. PREDNISOLONE [Concomitant]
     Indication: IMMUNE SYSTEM DISORDER
     Dosage: 5 MG, 2X/DAY
     Route: 048
     Dates: start: 20080101
  3. CELL CEPT [Concomitant]
     Indication: IMMUNE SYSTEM DISORDER
     Dosage: 2 G, 1X/DAY
     Route: 048
     Dates: start: 20080101
  4. FAMOTIDINE [Concomitant]
     Indication: ULCER
     Dosage: 40 MG, 1X/DAY
     Route: 048
     Dates: start: 20080101
  5. DILTIAZEM [Concomitant]
     Indication: HYPERTENSION
     Dosage: 90 MG, 1X/DAY
     Route: 048
     Dates: start: 20080101

REACTIONS (4)
  - SEPSIS [None]
  - CARDIAC ARREST [None]
  - DIARRHOEA [None]
  - ABDOMINAL DISCOMFORT [None]
